FAERS Safety Report 10335756 (Version 4)
Quarter: 2014Q3

REPORT INFORMATION
  Report Type: Report from Study
  Country: HU (occurrence: HU)
  Receive Date: 20140723
  Receipt Date: 20140827
  Transmission Date: 20150326
  Serious: Yes (Hospitalization, Other)
  Sender: FDA-Public Use
  Company Number: HU-B.I. PHARMACEUTICALS,INC./RIDGEFIELD-2014-BI-31949BI

PATIENT
  Age: 79 Year
  Sex: Male
  Weight: 55 kg

DRUGS (8)
  1. CHINOTAL [Concomitant]
     Active Substance: PENTOXIFYLLINE
     Indication: HYPERTENSION
     Dosage: 800 MG
     Route: 048
  2. ATORIS TEVA [Concomitant]
     Indication: HYPERCHOLESTEROLAEMIA
     Dosage: 100 MG
     Route: 048
     Dates: start: 20140728
  3. PANTOPRAZOLE [Concomitant]
     Active Substance: PANTOPRAZOLE SODIUM
     Indication: PROPHYLAXIS
     Dosage: 40 MG
     Route: 048
     Dates: start: 20140728
  4. ASPIRIN. [Concomitant]
     Active Substance: ASPIRIN
     Indication: PROPHYLAXIS
     Dosage: 100 MG
     Route: 048
     Dates: start: 2001
  5. MODUXIN MR [Concomitant]
     Dosage: 70 MG
     Route: 048
     Dates: start: 2011
  6. BIBW 2992 [Suspect]
     Active Substance: AFATINIB
     Dosage: 30 MG
     Route: 048
     Dates: start: 20140718, end: 20140721
  7. COVEREX [Concomitant]
     Indication: HYPERTENSION
     Dosage: 1 ANZ
     Route: 048
  8. BIBW 2992 [Suspect]
     Active Substance: AFATINIB
     Indication: NON-SMALL CELL LUNG CANCER
     Dosage: 40 MG
     Route: 048
     Dates: start: 20130325, end: 20140717

REACTIONS (6)
  - Hypotension [Not Recovered/Not Resolved]
  - Weight decreased [Recovered/Resolved]
  - Renal failure [Recovered/Resolved]
  - Pulmonary embolism [Not Recovered/Not Resolved]
  - Dehydration [Recovered/Resolved]
  - Diarrhoea [Recovered/Resolved]

NARRATIVE: CASE EVENT DATE: 20140618
